FAERS Safety Report 26064948 (Version 2)
Quarter: 2025Q4

REPORT INFORMATION
  Report Type: Report from Study
  Country: CA (occurrence: CA)
  Receive Date: 20251119
  Receipt Date: 20251231
  Transmission Date: 20260118
  Serious: Yes (Other)
  Sender: PFIZER
  Company Number: CA-PFIZER INC-202500225719

PATIENT
  Age: 29 Year
  Sex: Female
  Weight: 66 kg

DRUGS (7)
  1. IXIFI [Suspect]
     Active Substance: INFLIXIMAB-QBTX
     Indication: Colitis ulcerative
     Dosage: 650 MG, EVERY 6 WEEK
     Route: 042
     Dates: start: 20250529
  2. IXIFI [Suspect]
     Active Substance: INFLIXIMAB-QBTX
     Dosage: 650 MG, EVERY 6 WEEK
     Route: 042
     Dates: start: 20251002
  3. IXIFI [Suspect]
     Active Substance: INFLIXIMAB-QBTX
     Dosage: 650 MG, EVERY 6 WEEK
     Route: 042
     Dates: start: 20251114
  4. IXIFI [Suspect]
     Active Substance: INFLIXIMAB-QBTX
     Dosage: 650 MG, EVERY 6 WEEKS
     Route: 042
     Dates: start: 20251223
  5. ENTYVIO [Concomitant]
     Active Substance: VEDOLIZUMAB
     Dosage: UNK
  6. MINERALS\VITAMINS [Concomitant]
     Active Substance: MINERALS\VITAMINS
     Dosage: UNK
  7. RESTORFLORA [Concomitant]
     Dosage: UNK

REACTIONS (2)
  - Eye operation [Recovered/Resolved]
  - Condition aggravated [Recovered/Resolved]

NARRATIVE: CASE EVENT DATE: 20251024
